FAERS Safety Report 10451337 (Version 1)
Quarter: 2014Q3

REPORT INFORMATION
  Report Type: Spontaneous
  Country: US (occurrence: US)
  Receive Date: 20140912
  Receipt Date: 20140912
  Transmission Date: 20150326
  Serious: Yes (Death, Hospitalization, Other)
  Sender: FDA-Public Use
  Company Number: US-B.I. PHARMACEUTICALS,INC./RIDGEFIELD-2014-BI-42699BP

PATIENT
  Age: 75 Year
  Sex: Female

DRUGS (2)
  1. CHEMOTHERAPHY [Concomitant]
     Indication: METASTATIC NEOPLASM
     Route: 065
  2. PRADAXA [Suspect]
     Active Substance: DABIGATRAN ETEXILATE MESYLATE
     Indication: ATRIAL FIBRILLATION
     Dosage: 300 MG
     Route: 048
     Dates: start: 20111016, end: 20130302

REACTIONS (6)
  - Metabolic encephalopathy [Not Recovered/Not Resolved]
  - Haemorrhagic anaemia [Unknown]
  - Sepsis [Unknown]
  - Gastrointestinal haemorrhage [Recovered/Resolved]
  - Cardio-respiratory arrest [Fatal]
  - Coagulopathy [Unknown]

NARRATIVE: CASE EVENT DATE: 20130302
